FAERS Safety Report 6567921-5 (Version None)
Quarter: 2010Q2

REPORT INFORMATION
  Report Type: 
  Country: None (occurrence: None)
  Receive Date: 20100203
  Receipt Date: 20100125
  Transmission Date: 20101027
  Serious: Yes (Hospitalization)
  Sender: FDA-Public Use
  Company Number: US-JNJFOC-20100110397

PATIENT
  Age: 12 Month
  Sex: Male
  Weight: 9.53 kg

DRUGS (2)
  1. CONCENTRATED MOTRIN INFANTS DROPS [Suspect]
     Indication: NASOPHARYNGITIS
     Dosage: ^ON AN OFF FOR 2 DAYS^
     Route: 048
  2. CONCENTRATED MOTRIN INFANTS DROPS [Suspect]
     Indication: PYREXIA
     Dosage: ^ON AN OFF FOR 2 DAYS^
     Route: 048

REACTIONS (5)
  - ABDOMINAL PAIN UPPER [None]
  - CRYING [None]
  - DEHYDRATION [None]
  - PRODUCT QUALITY ISSUE [None]
  - SCREAMING [None]
